FAERS Safety Report 5382260-6 (Version None)
Quarter: 2007Q3

REPORT INFORMATION
  Report Type: 
  Country: None (occurrence: None)
  Receive Date: 20070709
  Receipt Date: 20070627
  Transmission Date: 20080115
  Serious: Yes (Other)
  Sender: FDA-Public Use
  Company Number: US-PFIZER INC-2007049483

PATIENT
  Age: 64 Year
  Sex: Male
  Weight: 80.7 kg

DRUGS (7)
  1. CHANTIX [Suspect]
     Indication: SMOKING CESSATION THERAPY
  2. TAMSULOSIN HCL [Suspect]
     Indication: NOCTURIA
  3. LUNESTA [Suspect]
     Indication: SLEEP DISORDER
     Dates: start: 20070601, end: 20070601
  4. NICOTINE [Suspect]
  5. NORVASC [Concomitant]
  6. METOPROLOL SUCCINATE [Concomitant]
     Indication: HYPERTENSION
  7. VALSARTAN [Concomitant]

REACTIONS (7)
  - ADVERSE DRUG REACTION [None]
  - ANXIETY [None]
  - DRUG WITHDRAWAL SYNDROME [None]
  - FEELING ABNORMAL [None]
  - INSOMNIA [None]
  - LOSS OF CONSCIOUSNESS [None]
  - SLEEP DISORDER [None]
